FAERS Safety Report 5643684-2 (Version None)
Quarter: 2008Q1

REPORT INFORMATION
  Report Type: 
  Country: None (occurrence: None)
  Receive Date: 20080228
  Receipt Date: 20080218
  Transmission Date: 20080703
  Serious: Yes (Hospitalization, Other)
  Sender: FDA-Public Use
  Company Number: ES-GILEAD-2008-0015327

PATIENT
  Age: 33 Year
  Sex: Female

DRUGS (9)
  1. TRUVADA [Suspect]
     Indication: HIV INFECTION
  2. PREZISTA [Concomitant]
  3. NORVIR [Concomitant]
  4. SULFADIAZINE [Concomitant]
     Indication: TOXOPLASMOSIS PROPHYLAXIS
  5. PIRIMETAMINE [Concomitant]
     Indication: TOXOPLASMOSIS PROPHYLAXIS
  6. LEDERFOLINE [Concomitant]
     Indication: TOXOPLASMOSIS PROPHYLAXIS
  7. METAMIZOL [Concomitant]
     Indication: PAIN
  8. METHADONE HCL [Concomitant]
  9. METRONIDAZOLE [Concomitant]

REACTIONS (2)
  - CHEST PAIN [None]
  - RENAL FAILURE [None]
